FAERS Safety Report 10274784 (Version 2)
Quarter: 2014Q3

REPORT INFORMATION
  Report Type: Spontaneous
  Country: US (occurrence: US)
  Receive Date: 20140702
  Receipt Date: 20140909
  Transmission Date: 20150326
  Serious: No
  Sender: FDA-Public Use
  Company Number: US-GILEAD-2014-0106813

PATIENT
  Age: 67 Year
  Sex: Male
  Weight: 77.11 kg

DRUGS (3)
  1. SOVALDI [Suspect]
     Active Substance: SOFOSBUVIR
     Indication: CHRONIC HEPATITIS C
     Dosage: 400 MG, QD
     Route: 048
     Dates: start: 20140424
  2. GLUCOSAMINE CHONDROITIN            /01625901/ [Concomitant]
     Dosage: 1500 DF, AS DIRECTED
  3. SIMEPREVIR [Concomitant]
     Active Substance: SIMEPREVIR
     Indication: CHRONIC HEPATITIS C
     Dosage: 150 MG, QD
     Route: 048
     Dates: start: 20140424

REACTIONS (5)
  - Increased appetite [Unknown]
  - Headache [Unknown]
  - Bronchitis [Unknown]
  - Myalgia [Recovered/Resolved]
  - Vertigo [Unknown]

NARRATIVE: CASE EVENT DATE: 2014
